FAERS Safety Report 21290419 (Version 1)
Quarter: 2022Q3

REPORT INFORMATION
  Report Type: Spontaneous
  Country: US (occurrence: US)
  Receive Date: 20220902
  Receipt Date: 20220902
  Transmission Date: 20221027
  Serious: Yes (Other)
  Sender: FDA-Public Use
  Company Number: US-HORIZON THERAPEUTICS-HZN-2022-005890

PATIENT

DRUGS (2)
  1. TEPEZZA [Suspect]
     Active Substance: TEPROTUMUMAB-TRBW
     Indication: Endocrine ophthalmopathy
     Dosage: FIRST INFUSION
     Route: 042
  2. SOLU-MEDROL [Suspect]
     Active Substance: METHYLPREDNISOLONE SODIUM SUCCINATE
     Indication: Endocrine ophthalmopathy
     Dosage: INFUSION
     Route: 065

REACTIONS (5)
  - Basedow^s disease [Unknown]
  - Condition aggravated [Unknown]
  - Drug ineffective [Unknown]
  - Illness [Unknown]
  - Ophthalmic migraine [Unknown]
